FAERS Safety Report 12540412 (Version 3)
Quarter: 2016Q3

REPORT INFORMATION
  Report Type: Spontaneous
  Country: US (occurrence: US)
  Receive Date: 20160708
  Receipt Date: 20160802
  Transmission Date: 20161109
  Serious: No
  Sender: FDA-Public Use
  Company Number: US-PFIZER INC-2016308645

PATIENT
  Age: 51 Year
  Sex: Female

DRUGS (1)
  1. NEURONTIN [Suspect]
     Active Substance: GABAPENTIN
     Indication: NEURALGIA
     Dosage: 600 MG, 4X/DAY
     Route: 048
     Dates: start: 20111206, end: 20130206

REACTIONS (3)
  - Confusional state [Recovered/Resolved]
  - Drug hypersensitivity [Unknown]
  - Impaired work ability [Unknown]

NARRATIVE: CASE EVENT DATE: 20130206
